FAERS Safety Report 7301506-8 (Version None)
Quarter: 2011Q1

REPORT INFORMATION
  Report Type: 
  Country: None (occurrence: None)
  Receive Date: 20110218
  Receipt Date: 20100920
  Transmission Date: 20110831
  Serious: No
  Sender: FDA-Public Use
  Company Number: US-BRISTOL-MYERS SQUIBB COMPANY-15296338

PATIENT
  Age: 33 Year
  Sex: Female

DRUGS (6)
  1. DEXAMETHASONE [Suspect]
     Indication: ECZEMA
     Dosage: 1 DF=1CC
     Route: 030
  2. LOCOID [Concomitant]
     Dosage: CREAM FOR 3 DAYS
     Dates: start: 20090331, end: 20090414
  3. KENALOG [Suspect]
     Indication: ECZEMA
     Dosage: 20MG:14APR2009 30MG:18SEP2009 30MG:15OCT2009:40MG
     Route: 030
     Dates: start: 20090331
  4. CETAPHIL [Concomitant]
     Dates: start: 20090331
  5. ZYRTEC [Concomitant]
     Route: 048
     Dates: start: 20090331
  6. CLODERM [Concomitant]
     Dosage: CREAM PERIORAL AREA
     Dates: start: 20090331

REACTIONS (2)
  - INJECTION SITE ATROPHY [None]
  - SKIN HYPOPIGMENTATION [None]
